FAERS Safety Report 18076781 (Version 1)
Quarter: 2020Q3

REPORT INFORMATION
  Report Type: Spontaneous
  Country: US (occurrence: US)
  Receive Date: 20200728
  Receipt Date: 20200728
  Transmission Date: 20201103
  Serious: Yes (Life-Threatening, Hospitalization, Other)
  Sender: FDA-Public Use
  Company Number: US-CIPLA LTD.-2020US04846

PATIENT

DRUGS (4)
  1. STANOZOLOL [Suspect]
     Active Substance: STANOZOLOL
     Indication: PRODUCT USED FOR UNKNOWN INDICATION
     Dosage: 2 MILLILITER, EACH WEEK
     Route: 065
  2. WHEY PROTEIN [Concomitant]
     Active Substance: WHEY
     Indication: SUPPLEMENTATION THERAPY
     Dosage: 500 GRAM, PER DAY, MIXED IN MILK
     Route: 048
  3. TESTOSTERONE. [Suspect]
     Active Substance: TESTOSTERONE
     Indication: PRODUCT USED FOR UNKNOWN INDICATION
     Dosage: 1 MILLIGRAM, EACH WEEK
     Route: 065
  4. LIOTHYRONINE [Suspect]
     Active Substance: LIOTHYRONINE
     Indication: PRODUCT USED FOR UNKNOWN INDICATION
     Dosage: 25 MCG, EACH DAY
     Route: 048

REACTIONS (4)
  - Coronary artery occlusion [Recovering/Resolving]
  - Left ventricular hypertrophy [Unknown]
  - Acute myocardial infarction [Recovered/Resolved]
  - Thrombocytosis [Unknown]
